FAERS Safety Report 10695804 (Version 1)
Quarter: 2015Q1

REPORT INFORMATION
  Report Type: Spontaneous
  Country: US (occurrence: US)
  Receive Date: 20150107
  Receipt Date: 20150107
  Transmission Date: 20150721
  Serious: No
  Sender: FDA-Public Use
  Company Number: US-009507513-1412USA007043

PATIENT
  Age: 50 Year
  Sex: Male

DRUGS (3)
  1. PROVENTIL [Suspect]
     Active Substance: ALBUTEROL
     Dosage: 2 DF, Q4H
     Route: 055
  2. WARFARIN [Concomitant]
     Active Substance: WARFARIN
  3. PROVENTIL [Suspect]
     Active Substance: ALBUTEROL
     Dosage: 2 DF, Q4H
     Route: 055
     Dates: start: 2008

REACTIONS (4)
  - Product quality issue [Unknown]
  - Respiratory disorder [Not Recovered/Not Resolved]
  - Drug dose omission [Unknown]
  - Dyspnoea [Not Recovered/Not Resolved]

NARRATIVE: CASE EVENT DATE: 2014
